FAERS Safety Report 7341387-X (Version None)
Quarter: 2011Q1

REPORT INFORMATION
  Report Type: 
  Country: None (occurrence: None)
  Receive Date: 20110309
  Receipt Date: 20100831
  Transmission Date: 20110831
  Serious: Yes (Other)
  Sender: FDA-Public Use
  Company Number: US-BAYER-201028702NA

PATIENT
  Sex: Female
  Weight: 83.447 kg

DRUGS (17)
  1. ZOLOFT [Concomitant]
     Indication: DEPRESSION
  2. PRILOSEC [Concomitant]
     Indication: GASTROOESOPHAGEAL REFLUX DISEASE
     Dosage: 20 MG, QD
  3. PROCHLORPERAZINE [Concomitant]
  4. ZOLOFT [Concomitant]
     Indication: ANXIETY
  5. RANITIDINE [Concomitant]
     Indication: REFLUX OESOPHAGITIS
  6. DICLOFENAC [Concomitant]
     Indication: PRODUCT USED FOR UNKNOWN INDICATION
  7. YAZ [Suspect]
     Indication: CONTRACEPTION
     Dosage: UNK
     Route: 048
     Dates: start: 20090107, end: 20100113
  8. ASPIRIN [Concomitant]
  9. EFFEXOR [Concomitant]
     Indication: DEPRESSION
  10. OMEPRAZOLE [Concomitant]
     Indication: DYSPEPSIA
  11. MOTRIN [Concomitant]
     Indication: PRODUCT USED FOR UNKNOWN INDICATION
  12. IRON [Concomitant]
  13. EFFEXOR [Concomitant]
     Indication: ANXIETY
     Dosage: 100 MG, QD
     Route: 048
  14. SERTRALINE [Concomitant]
     Indication: PRODUCT USED FOR UNKNOWN INDICATION
  15. TIZANIDINE [Concomitant]
  16. RANITIDINE [Concomitant]
     Indication: DYSPEPSIA
  17. CYMBALTA [Concomitant]
     Indication: PRODUCT USED FOR UNKNOWN INDICATION

REACTIONS (14)
  - TRISMUS [None]
  - TINNITUS [None]
  - BENIGN INTRACRANIAL HYPERTENSION [None]
  - ASTHENIA [None]
  - CEREBROVASCULAR ACCIDENT [None]
  - NAUSEA [None]
  - DIZZINESS [None]
  - HEADACHE [None]
  - MIGRAINE WITH AURA [None]
  - DYSARTHRIA [None]
  - TRANSIENT ISCHAEMIC ATTACK [None]
  - HYPOAESTHESIA [None]
  - SYNCOPE [None]
  - PHOTOPHOBIA [None]
